FAERS Safety Report 7854740-2 (Version None)
Quarter: 2011Q4

REPORT INFORMATION
  Report Type: 
  Country: None (occurrence: None)
  Receive Date: 20111026
  Receipt Date: 20110819
  Transmission Date: 20120403
  Serious: No
  Sender: FDA-Public Use
  Company Number: US-MUTUAL PHARMACEUTICAL COMPANY, INC.-CLCY20110109

PATIENT
  Sex: Female
  Weight: 67.192 kg

DRUGS (7)
  1. ALLOPURINOL [Concomitant]
     Indication: GOUT
     Route: 048
  2. WARFARIN SODIUM [Concomitant]
     Indication: ATRIAL FIBRILLATION
     Route: 048
  3. TRIAMTERENE AND HYDROCHLOROTHIAZIDE [Concomitant]
     Indication: HYPERTENSION
     Route: 048
  4. CARVEDILOL [Concomitant]
     Indication: HYPERTENSION
     Route: 048
  5. COLCRYS [Suspect]
     Indication: GOUT
     Route: 048
     Dates: start: 20110801, end: 20110802
  6. ALPRAZOLAM [Concomitant]
     Indication: INSOMNIA
     Route: 048
  7. FUROSEMIDE [Concomitant]
     Indication: CARDIAC FAILURE CONGESTIVE
     Route: 048

REACTIONS (1)
  - DIARRHOEA [None]
